FAERS Safety Report 16479131 (Version 1)
Quarter: 2019Q2

REPORT INFORMATION
  Report Type: Spontaneous
  Country: None (occurrence: US)
  Receive Date: 20190626
  Receipt Date: 20190626
  Transmission Date: 20190711
  Serious: No
  Sender: FDA-Public Use
  Company Number: US-SAOL THERAPEUTICS-2018SAO00966

PATIENT
  Age: 24 Year
  Weight: 43.08 kg

DRUGS (2)
  1. LIORESAL [Suspect]
     Active Substance: BACLOFEN
     Indication: MUSCLE SPASTICITY
     Dosage: 850.4 ?G, \DAY
     Route: 037
  2. LIORESAL [Suspect]
     Active Substance: BACLOFEN
     Dosage: 849 ?G, \DAY
     Route: 037

REACTIONS (7)
  - Hypotonia [Unknown]
  - Fatigue [Unknown]
  - Anal incontinence [None]
  - Lethargy [Unknown]
  - Somnolence [Unknown]
  - Urinary incontinence [Unknown]
  - Device infusion issue [Unknown]

NARRATIVE: CASE EVENT DATE: 201808
